FAERS Safety Report 4910440-X (Version None)
Quarter: 2006Q1

REPORT INFORMATION
  Report Type: 
  Country: None (occurrence: None)
  Receive Date: 20060209
  Receipt Date: 20031203
  Transmission Date: 20060701
  Serious: Yes (Other)
  Sender: FDA-Public Use
  Company Number: HQ3315918JUL2002

PATIENT
  Age: 34 Year
  Sex: Female

DRUGS (3)
  1. MYLOTARG [Suspect]
     Indication: ACUTE MYELOID LEUKAEMIA
     Dosage: 10.6 MG 1X PER 1 DAY, INTRAVENOUS
     Route: 042
     Dates: start: 20020623, end: 20020623
  2. CYTARABINE [Concomitant]
  3. CERBUIDINE (DAUNORUBICIN HYDROCHLORIDE) [Concomitant]

REACTIONS (4)
  - ANXIETY [None]
  - HYPOXIA [None]
  - PLEURAL EFFUSION [None]
  - PULMONARY OEDEMA [None]
